FAERS Safety Report 13776898 (Version 4)
Quarter: 2018Q1

REPORT INFORMATION
  Report Type: Spontaneous
  Country: US (occurrence: US)
  Receive Date: 20170721
  Receipt Date: 20180202
  Transmission Date: 20180508
  Serious: Yes (Other)
  Sender: FDA-Public Use
  Company Number: US-SA-2017SA014139

PATIENT
  Age: 34 Year
  Sex: Male

DRUGS (2)
  1. LEMTRADA [Suspect]
     Active Substance: ALEMTUZUMAB
     Route: 041
     Dates: start: 20150104
  2. LEMTRADA [Suspect]
     Active Substance: ALEMTUZUMAB
     Route: 041

REACTIONS (8)
  - Influenza [Recovered/Resolved]
  - Fatigue [Unknown]
  - Pharyngitis streptococcal [Unknown]
  - Insomnia [Unknown]
  - Infection [Unknown]
  - Rheumatoid arthritis [Unknown]
  - Rheumatic fever [Unknown]
  - Herpes zoster [Unknown]

NARRATIVE: CASE EVENT DATE: 2015
